FAERS Safety Report 4994145-5 (Version None)
Quarter: 2006Q2

REPORT INFORMATION
  Report Type: 
  Country: None (occurrence: None)
  Receive Date: 20060503
  Receipt Date: 20060421
  Transmission Date: 20061013
  Serious: Yes (Death, Hospitalization)
  Sender: FDA-Public Use
  Company Number: 2006JP000565

PATIENT
  Age: 31 Year
  Sex: Male

DRUGS (7)
  1. PROGRAF [Suspect]
     Indication: BONE MARROW TRANSPLANT
     Dosage: 1.25 MG, UID/QD, IV DRIP
     Route: 041
     Dates: start: 20050309, end: 20050411
  2. PROGRAF [Suspect]
     Indication: BONE MARROW TRANSPLANT
     Dosage: 1 MG, BID, ORAL
     Route: 048
     Dates: start: 20050412, end: 20060322
  3. METHOTREXATE [Suspect]
     Indication: BONE MARROW TRANSPLANT
     Dosage: 17 MG, UID/QD, IV DRIP
     Route: 041
     Dates: start: 20050311, end: 20050316
  4. PREDONINE(PREDNISOLONE SODIUM SUCCINATE) TABLET [Suspect]
     Dosage: 30 MG, BID, ORAL
     Route: 048
     Dates: start: 20050901, end: 20050903
  5. MEDROL [Suspect]
     Dosage: 24 MG, BID, ORAL
     Route: 048
     Dates: start: 20050904, end: 20060322
  6. DENOSINE(GANCICLOVIR) INJECTION [Suspect]
     Indication: CYTOMEGALOVIRUS INFECTION
     Dosage: 250 MG, IV DRIP
     Route: 041
     Dates: start: 20050413, end: 20050419
  7. SOL MEDROL(METHYLPREDNISOLONE, SUCCINATE SODIUM) INJECTION [Suspect]
     Indication: IDIOPATHIC PNEUMONIA SYNDROME
     Dosage: 1000 MG, UID/QD, IV DRIP
     Route: 041
     Dates: start: 20050829, end: 20050831

REACTIONS (4)
  - CYTOMEGALOVIRUS INFECTION [None]
  - IDIOPATHIC PNEUMONIA SYNDROME [None]
  - PNEUMONIA BACTERIAL [None]
  - REFUSAL OF TREATMENT BY PATIENT [None]
